FAERS Safety Report 24381410 (Version 1)
Quarter: 2024Q4

REPORT INFORMATION
  Report Type: Report from Study
  Country: GR (occurrence: GR)
  Receive Date: 20241001
  Receipt Date: 20241001
  Transmission Date: 20250114
  Serious: Yes (Death, Other)
  Sender: TAKEDA
  Company Number: GR-TAKEDA-2024TUS096085

PATIENT
  Age: 81 Year
  Sex: Female

DRUGS (6)
  1. HUMAN IMMUNOGLOBULIN G\HYALURONIDASE RECOMBINANT HUMAN [Suspect]
     Active Substance: HUMAN IMMUNOGLOBULIN G\HYALURONIDASE (HUMAN RECOMBINANT)
     Indication: Immunodeficiency
     Dosage: UNK UNK, MONTHLY
     Route: 050
     Dates: start: 2020
  2. CIPROFLOXACIN [Concomitant]
     Active Substance: CIPROFLOXACIN
     Indication: Immunodeficiency
     Dosage: UNK UNK, 3/WEEK
     Route: 065
  3. VALTREX [Concomitant]
     Active Substance: VALACYCLOVIR HYDROCHLORIDE
     Indication: Herpes virus infection
     Dosage: UNK UNK, QD
     Route: 065
  4. BISOPROLOL FUMARATE [Concomitant]
     Active Substance: BISOPROLOL FUMARATE
     Indication: Atrial fibrillation
     Dosage: UNK
     Route: 065
  5. BISOPROLOL FUMARATE [Concomitant]
     Active Substance: BISOPROLOL FUMARATE
     Indication: Anticoagulant therapy
  6. XARELTO [Concomitant]
     Active Substance: RIVAROXABAN
     Indication: Atrial fibrillation
     Dosage: UNK UNK, QD
     Route: 065

REACTIONS (2)
  - Sudden death [Fatal]
  - Cardiac arrest [Unknown]

NARRATIVE: CASE EVENT DATE: 20240601
